FAERS Safety Report 14054470 (Version 1)
Quarter: 2017Q4

REPORT INFORMATION
  Report Type: Spontaneous
  Country: US (occurrence: None)
  Receive Date: 20171005
  Receipt Date: 20171005
  Transmission Date: 20180321
  Serious: Yes (Hospitalization)
  Sender: FDA-Public Use
  Company Number: None

PATIENT
  Age: 52 Year
  Sex: Male

DRUGS (1)
  1. SUCCINYLCHOLINE [Suspect]
     Active Substance: SUCCINYLCHOLINE
     Route: 042
     Dates: start: 20160623, end: 20160623

REACTIONS (4)
  - Pharyngeal oedema [None]
  - Pain [None]
  - Rhabdomyolysis [None]
  - Throat irritation [None]

NARRATIVE: CASE EVENT DATE: 20160624
